FAERS Safety Report 19648682 (Version 1)
Quarter: 2021Q3

REPORT INFORMATION
  Report Type: Spontaneous
  Country: US (occurrence: US)
  Receive Date: 20210803
  Receipt Date: 20210803
  Transmission Date: 20211014
  Serious: No
  Sender: FDA-Public Use
  Company Number: US-TEVA-2021-US-1930697

PATIENT
  Sex: Female

DRUGS (1)
  1. BUPRENORPHINE. [Suspect]
     Active Substance: BUPRENORPHINE
     Dosage: 10MCG/HR
     Route: 062

REACTIONS (5)
  - Device leakage [Unknown]
  - Incorrect dose administered [Unknown]
  - Application site pain [Unknown]
  - Product adhesion issue [Unknown]
  - Device defective [Unknown]
